FAERS Safety Report 5254103-2 (Version None)
Quarter: 2007Q1

REPORT INFORMATION
  Report Type: 
  Country: None (occurrence: None)
  Receive Date: 20070302
  Receipt Date: 20070219
  Transmission Date: 20070707
  Serious: Yes (Other)
  Sender: FDA-Public Use
  Company Number: PHNU2007DE00946

PATIENT
  Sex: Male

DRUGS (3)
  1. EXELON [Suspect]
     Indication: PARKINSON'S DISEASE
     Dosage: 3 MG/DAY
     Route: 048
     Dates: start: 20070101
  2. MADOPAR [Concomitant]
     Dosage: UNKNOWN
     Route: 048
  3. PRAMIPEXOLE DIHYDROCHLORIDE [Concomitant]
     Dosage: UNKNOWN
     Route: 048

REACTIONS (1)
  - DIABETES INSIPIDUS [None]
